FAERS Safety Report 17210680 (Version 1)
Quarter: 2019Q4

REPORT INFORMATION
  Report Type: Spontaneous
  Country: US (occurrence: US)
  Receive Date: 20191227
  Receipt Date: 20191227
  Transmission Date: 20200122
  Serious: No
  Sender: FDA-Public Use
  Company Number: US-TEVA-2019-US-1156199

PATIENT
  Sex: Male

DRUGS (7)
  1. TRAZODONE HYDROCHLORIDE. [Suspect]
     Active Substance: TRAZODONE HYDROCHLORIDE
     Indication: SLEEP DISORDER
     Route: 065
  2. ADDERALL [Suspect]
     Active Substance: AMPHETAMINE ASPARTATE\AMPHETAMINE SULFATE\DEXTROAMPHETAMINE SACCHARATE\DEXTROAMPHETAMINE SULFATE
     Dosage: 20 MILLIGRAM DAILY; IMMEDIATE RELEASE ADDERALL
     Route: 065
  3. SUBOXONE UNKNOWN MANUFACTURER [Concomitant]
     Indication: DRUG DEPENDENCE
     Route: 065
  4. ADDERALL [Suspect]
     Active Substance: AMPHETAMINE ASPARTATE\AMPHETAMINE SULFATE\DEXTROAMPHETAMINE SACCHARATE\DEXTROAMPHETAMINE SULFATE
     Indication: ATTENTION DEFICIT/HYPERACTIVITY DISORDER
     Dosage: 20 MILLIGRAM DAILY; EXTENDED RELEASE ADDERALL
     Route: 065
  5. PROPRANOLOL UNKNOWN MANUFACTURER [Concomitant]
     Indication: TREMOR
     Route: 065
  6. CLARITIN UNKNOWN MANUFACTURER [Concomitant]
     Indication: HYPERSENSITIVITY
     Route: 065
  7. TRAZODONE HYDROCHLORIDE. [Suspect]
     Active Substance: TRAZODONE HYDROCHLORIDE
     Route: 065

REACTIONS (2)
  - Drug ineffective [Unknown]
  - Drug screen positive [Unknown]
